FAERS Safety Report 7490919-X (Version None)
Quarter: 2011Q2

REPORT INFORMATION
  Report Type: 
  Country: None (occurrence: None)
  Receive Date: 20110519
  Receipt Date: 20110510
  Transmission Date: 20111010
  Serious: Yes (Other)
  Sender: FDA-Public Use
  Company Number: DE-BAXTER-2011BH014675

PATIENT
  Age: 47 Year
  Sex: Male

DRUGS (2)
  1. GAMMAGARD LIQUID [Suspect]
     Indication: IMMUNODEFICIENCY
     Route: 042
     Dates: start: 20110413
  2. SYMBICORT [Concomitant]
     Indication: ASTHMA
     Route: 055

REACTIONS (4)
  - CHILLS [None]
  - TACHYCARDIA [None]
  - HYPOTENSION [None]
  - OXYGEN SATURATION DECREASED [None]
